FAERS Safety Report 8531702-3 (Version None)
Quarter: 2012Q3

REPORT INFORMATION
  Report Type: 
  Country: None (occurrence: None)
  Receive Date: 20120723
  Receipt Date: 20120711
  Transmission Date: 20120928
  Serious: No
  Sender: FDA-Public Use
  Company Number: US-B.I. PHARMACEUTICALS,INC./RIDGEFIELD-2012-BP-15462BP

PATIENT
  Sex: Male

DRUGS (3)
  1. ATACAND [Concomitant]
     Indication: HYPERTENSION
  2. NORVASC [Concomitant]
     Indication: HYPERTENSION
  3. FLOMAX [Suspect]
     Indication: BENIGN PROSTATIC HYPERPLASIA
     Dosage: 0.4 MG
     Route: 048
     Dates: start: 20120520, end: 20120601

REACTIONS (1)
  - THERAPEUTIC RESPONSE UNEXPECTED [None]
